FAERS Safety Report 26002102 (Version 2)
Quarter: 2025Q4

REPORT INFORMATION
  Report Type: Spontaneous
  Country: JP (occurrence: JP)
  Receive Date: 20251105
  Receipt Date: 20251117
  Transmission Date: 20260117
  Serious: Yes (Death)
  Sender: PURDUE
  Company Number: JP-NAPPMUNDI-GBR-2025-0126787

PATIENT
  Age: 25 Year
  Sex: Male

DRUGS (4)
  1. OXYCODONE [Suspect]
     Active Substance: OXYCODONE
     Indication: Cancer pain
     Dosage: 700 MILLIGRAM, DAILY (CONTINUOUS SC INFUSION OF 600-700 MG/DAY)
     Route: 058
     Dates: start: 202506
  2. OXYCODONE [Suspect]
     Active Substance: OXYCODONE
     Dosage: DOSE INCREASED
     Route: 058
     Dates: start: 202508
  3. NALDEMEDINE [Suspect]
     Active Substance: NALDEMEDINE
     Indication: Product used for unknown indication
     Dosage: UNK
     Route: 065
  4. MORPHINE HYDROCHLORIDE [Concomitant]
     Active Substance: MORPHINE HYDROCHLORIDE
     Indication: Product used for unknown indication
     Dosage: UNK
     Route: 065

REACTIONS (2)
  - Leukaemia [Fatal]
  - Constipation [Recovering/Resolving]

NARRATIVE: CASE EVENT DATE: 20250601
